FAERS Safety Report 7484195-1 (Version None)
Quarter: 2011Q2

REPORT INFORMATION
  Report Type: 
  Country: None (occurrence: None)
  Receive Date: 20110509
  Receipt Date: 20110425
  Transmission Date: 20111010
  Serious: Yes (Other)
  Sender: FDA-Public Use
  Company Number: JP-ACCORD-008923

PATIENT
  Age: 32 Year
  Sex: Male

DRUGS (3)
  1. ETOPOSIDE [Suspect]
     Indication: SEMINOMA
  2. CISPLATIN [Suspect]
     Indication: SEMINOMA
  3. BLEOMYCIN SULFATE [Suspect]
     Indication: SEMINOMA

REACTIONS (3)
  - LYMPHADENOPATHY [None]
  - SARCOIDOSIS [None]
  - PARADOXICAL DRUG REACTION [None]
